FAERS Safety Report 8299307 (Version 3)
Quarter: 2013Q2

REPORT INFORMATION
  Report Type: Report from Study
  Country: DE (occurrence: DE)
  Receive Date: 20111219
  Receipt Date: 20130507
  Transmission Date: 20140414
  Serious: Yes (Death, Hospitalization)
  Sender: FDA-Public Use
  Company Number: DE-BRISTOL-MYERS SQUIBB COMPANY-16257495

PATIENT
  Age: 81 Year
  Sex: Male
  Weight: 62 kg

DRUGS (5)
  1. ERBITUX SOLN FOR INF [Suspect]
     Indication: COLORECTAL CANCER METASTATIC
     Dosage: 250MG/M2 ONCE A WK:02AUG10-17JAN11,400MG/M2 ON 23MAY11;250MG/M2:30MAY11-22NOV11
     Route: 042
     Dates: start: 20100719
  2. 5-FU [Concomitant]
     Indication: COLORECTAL CANCER METASTATIC
     Dosage: 1 DF= BOLUS 400MG/M2, CONTINUOUS INF OF 2000MG/M2 OVER 46 H (MG/M2).
     Route: 042
     Dates: start: 20100607, end: 20111122
  3. OXALIPLATIN [Concomitant]
     Indication: COLORECTAL CANCER METASTATIC
     Route: 042
     Dates: start: 20100607, end: 20111122
  4. FOLINIC ACID [Concomitant]
     Indication: COLORECTAL CANCER METASTATIC
     Route: 042
     Dates: start: 20100607, end: 20111122
  5. CAPECITABINE [Concomitant]
     Indication: COLORECTAL CANCER METASTATIC
     Route: 042
     Dates: start: 20110523

REACTIONS (3)
  - Azotaemia [Fatal]
  - Dehydration [Not Recovered/Not Resolved]
  - Hypocalcaemia [Not Recovered/Not Resolved]
